FAERS Safety Report 4617645-6 (Version None)
Quarter: 2005Q1

REPORT INFORMATION
  Report Type: 
  Country: None (occurrence: None)
  Receive Date: 20050324
  Receipt Date: 20050224
  Transmission Date: 20050727
  Serious: Yes (Disabling)
  Sender: FDA-Public Use
  Company Number: CZ-MERCK-0503CZE00010

PATIENT
  Age: 54 Year
  Sex: Female

DRUGS (4)
  1. VIOXX [Suspect]
     Indication: ARTHRALGIA
     Route: 048
     Dates: start: 20020108, end: 20040220
  2. VIOXX [Suspect]
     Indication: OSTEOARTHRITIS
     Route: 048
     Dates: start: 20020108, end: 20040220
  3. CELECOXIB [Concomitant]
     Indication: ARTHRALGIA
     Route: 048
  4. CELECOXIB [Concomitant]
     Indication: OSTEOARTHRITIS
     Route: 048

REACTIONS (2)
  - GENERAL SYMPTOM [None]
  - HEADACHE [None]
